FAERS Safety Report 15936488 (Version 2)
Quarter: 2019Q1

REPORT INFORMATION
  Report Type: Spontaneous
  Country: DE (occurrence: DE)
  Receive Date: 20190208
  Receipt Date: 20190212
  Transmission Date: 20190417
  Serious: Yes (Disabling, Other)
  Sender: FDA-Public Use
  Company Number: DE-ROCHE-2256647

PATIENT
  Age: 79 Year
  Sex: Female

DRUGS (1)
  1. AVASTIN [Suspect]
     Active Substance: BEVACIZUMAB
     Indication: MACULAR DEGENERATION
     Dosage: 2 INJECTIONS
     Route: 065

REACTIONS (6)
  - Feeling abnormal [Not Recovered/Not Resolved]
  - Intentional product use issue [Unknown]
  - Headache [Not Recovered/Not Resolved]
  - Off label use [Unknown]
  - Photopsia [Not Recovered/Not Resolved]
  - Visual impairment [Not Recovered/Not Resolved]
